FAERS Safety Report 4783874-4 (Version None)
Quarter: 2005Q3

REPORT INFORMATION
  Report Type: 
  Country: None (occurrence: None)
  Receive Date: 20050929
  Receipt Date: 20040607
  Transmission Date: 20060218
  Serious: Yes (Life-Threatening)
  Sender: FDA-Public Use
  Company Number: US-MERCK-0406USA00583

PATIENT
  Age: 88 Year
  Sex: Female

DRUGS (3)
  1. FOSAMAX [Suspect]
     Indication: OSTEOPOROSIS
     Route: 048
     Dates: start: 20030101, end: 20040329
  2. NORVASC [Concomitant]
     Route: 065
  3. DIURETIC (UNSPECIFIED) [Concomitant]
     Route: 065

REACTIONS (10)
  - ABDOMINAL DISTENSION [None]
  - ABDOMINAL PAIN UPPER [None]
  - ARTHRALGIA [None]
  - CARPAL TUNNEL SYNDROME [None]
  - CONSTIPATION [None]
  - JOINT SWELLING [None]
  - MALAISE [None]
  - MYALGIA [None]
  - NAUSEA [None]
  - SKIN IRRITATION [None]
